FAERS Safety Report 4370483-4 (Version None)
Quarter: 2004Q2

REPORT INFORMATION
  Report Type: 
  Country: None (occurrence: None)
  Receive Date: 20040527
  Receipt Date: 20040511
  Transmission Date: 20050107
  Serious: Yes (Other)
  Sender: FDA-Public Use
  Company Number: 2004-DE-02762GD

PATIENT
  Sex: Male

DRUGS (6)
  1. PREDNISONE TAB [Suspect]
     Indication: CROHN'S DISEASE
     Dosage: 20 MG
  2. PREDNISONE TAB [Suspect]
     Indication: GASTROINTESTINAL HAEMORRHAGE
     Dosage: 20 MG
  3. BUDESONIDE (BUDESONIDE) [Concomitant]
     Indication: CROHN'S DISEASE
  4. BUDESONIDE (BUDESONIDE) [Concomitant]
     Indication: GASTROINTESTINAL HAEMORRHAGE
  5. MESALAZINE (MESALAZINE) [Suspect]
     Indication: CROHN'S DISEASE
     Dosage: 3 G
  6. MESALAZINE (MESALAZINE) [Suspect]
     Indication: GASTROINTESTINAL HAEMORRHAGE
     Dosage: 3 G

REACTIONS (4)
  - ANAEMIA [None]
  - DIARRHOEA HAEMORRHAGIC [None]
  - ENTEROCOLITIS [None]
  - REFUSAL OF TREATMENT BY PATIENT [None]
